FAERS Safety Report 8519030-3 (Version None)
Quarter: 2012Q3

REPORT INFORMATION
  Report Type: 
  Country: None (occurrence: None)
  Receive Date: 20120718
  Receipt Date: 20120716
  Transmission Date: 20120928
  Serious: Yes (Other)
  Sender: FDA-Public Use
  Company Number: PHHY2012CA035624

PATIENT
  Age: 5 Year
  Sex: Female

DRUGS (1)
  1. AZITHROMYCIN [Suspect]
     Dosage: 5 ML, DAILY
     Dates: start: 20120423

REACTIONS (4)
  - SKIN DISCOLOURATION [None]
  - RASH [None]
  - EYELID OEDEMA [None]
  - LIP DRY [None]
